FAERS Safety Report 5376099-5 (Version None)
Quarter: 2007Q3

REPORT INFORMATION
  Report Type: 
  Country: None (occurrence: None)
  Receive Date: 20070702
  Receipt Date: 20070628
  Transmission Date: 20080115
  Serious: Yes (Other)
  Sender: FDA-Public Use
  Company Number: A0660712A

PATIENT
  Age: 68 Year
  Sex: Female

DRUGS (5)
  1. AVANDIA [Suspect]
     Dosage: 4MG PER DAY
     Route: 048
     Dates: start: 20020101
  2. AMARYL [Concomitant]
  3. ENTERA [Concomitant]
  4. ATENOLOL [Concomitant]
  5. EVISTA [Concomitant]

REACTIONS (3)
  - FOOT FRACTURE [None]
  - FRACTURE NONUNION [None]
  - STRESS FRACTURE [None]
